FAERS Safety Report 8310269-9 (Version None)
Quarter: 2012Q2

REPORT INFORMATION
  Report Type: 
  Country: None (occurrence: None)
  Receive Date: 20120425
  Receipt Date: 20120413
  Transmission Date: 20120825
  Serious: Yes (Death, Hospitalization, Other)
  Sender: FDA-Public Use
  Company Number: US-SANOFI-AVENTIS-2012SA022202

PATIENT
  Age: 74 Year
  Sex: Male
  Weight: 68.93 kg

DRUGS (19)
  1. DIPHENHYDRAMINE [Concomitant]
     Indication: PREMEDICATION
  2. DOCETAXEL [Suspect]
     Indication: NON-SMALL CELL LUNG CANCER STAGE IV
     Route: 041
     Dates: start: 20120313
  3. NEXIUM [Concomitant]
     Dates: start: 20110726
  4. FENOFIBRATE [Concomitant]
  5. ASPIRIN [Concomitant]
  6. VALSARTAN [Concomitant]
  7. SUCRALFATE [Concomitant]
     Indication: ULCER
     Dates: start: 20120228
  8. MEGESTROL ACETATE [Concomitant]
     Indication: DECREASED APPETITE
     Dates: start: 20120131
  9. MULTI-VITAMINS [Concomitant]
     Indication: VITAMIN SUPPLEMENTATION
  10. DEXAMETHASONE [Concomitant]
     Indication: PREMEDICATION
  11. CALCIUM CARBONATE/ERGOCALCIFEROL [Concomitant]
     Indication: NUTRITIONAL SUPPORT
  12. LACTULOSE [Concomitant]
     Indication: CONSTIPATION
     Dates: start: 20110628
  13. LORAZEPAM [Concomitant]
     Indication: ANXIETY
     Dates: start: 20110426
  14. AMBIEN [Concomitant]
  15. GRANISETRON [Concomitant]
     Indication: PREMEDICATION
  16. VICODIN [Concomitant]
     Indication: PAIN
     Dates: start: 20110426
  17. METFORMIN HCL [Concomitant]
     Indication: HYPERTENSION
  18. BLINDED THERAPY [Suspect]
     Indication: NON-SMALL CELL LUNG CANCER STAGE IV
     Route: 042
     Dates: start: 20120313, end: 20120313
  19. SERTRALINE HYDROCHLORIDE [Concomitant]
     Indication: DEPRESSION
     Dates: start: 20120313

REACTIONS (4)
  - NEUTROPENIA [None]
  - DIARRHOEA [None]
  - PNEUMONIA [None]
  - DEHYDRATION [None]
